FAERS Safety Report 16071008 (Version 1)
Quarter: 2019Q1

REPORT INFORMATION
  Report Type: Spontaneous
  Country: FR (occurrence: FR)
  Receive Date: 20190314
  Receipt Date: 20190314
  Transmission Date: 20190418
  Serious: Yes (Hospitalization)
  Sender: FDA-Public Use
  Company Number: FR-ACCORD-112862

PATIENT
  Age: 58 Year
  Sex: Male
  Weight: 87 kg

DRUGS (11)
  1. LEVOTHYROX [Concomitant]
     Active Substance: LEVOTHYROXINE
     Dosage: 50 MICROGRAMS (SCORED TABLET)
     Route: 048
  2. GEMCITABINE ACCORD [Suspect]
     Active Substance: GEMCITABINE HYDROCHLORIDE
     Indication: BRONCHIAL CARCINOMA
     Dosage: UNSPECIFIED
     Route: 042
     Dates: start: 20180906, end: 20180906
  3. CISPLATINE MYLAN [Suspect]
     Active Substance: CISPLATIN
     Indication: BRONCHIAL CARCINOMA
     Dosage: UNSPECIFIED
     Route: 042
     Dates: start: 20180828, end: 20180828
  4. INNOHEP [Concomitant]
     Active Substance: TINZAPARIN SODIUM
     Indication: PULMONARY EMBOLISM
     Route: 058
  5. KARDEGIC [Concomitant]
     Active Substance: ASPIRIN DL-LYSINE
     Dosage: POWDER FOR ORAL SOLUTION IN SACHET
     Route: 048
  6. OXYNORMORO [Concomitant]
     Active Substance: OXYCODONE HYDROCHLORIDE
     Dosage: STRENGTH 5 MG
     Route: 048
     Dates: start: 201802
  7. CALCIDIA [Concomitant]
     Active Substance: CALCIUM CARBONATE
     Dosage: 1.54 G,
     Route: 048
  8. OXYCODONE MYLAN [Concomitant]
     Active Substance: OXYCODONE
     Dosage: PROLONGED RELEASE FILM-COATED TABLET
     Route: 048
     Dates: start: 201802
  9. AMLODIPINE [Concomitant]
     Active Substance: AMLODIPINE BESYLATE
     Dosage: 5 MG TABLETS
     Route: 048
  10. PRAZEPAM [Concomitant]
     Active Substance: PRAZEPAM
     Dosage: STRENGTH 10 MG
     Route: 048
  11. BISOCE [Concomitant]
     Active Substance: BISOPROLOL
     Route: 048

REACTIONS (1)
  - Tremor [Recovered/Resolved]

NARRATIVE: CASE EVENT DATE: 20180909
